FAERS Safety Report 17192266 (Version 3)
Quarter: 2020Q1

REPORT INFORMATION
  Report Type: Spontaneous
  Country: JP (occurrence: JP)
  Receive Date: 20191223
  Receipt Date: 20200317
  Transmission Date: 20200409
  Serious: Yes (Death, Other)
  Sender: FDA-Public Use
  Company Number: NVSJ2019JP005187

PATIENT
  Age: 68 Year
  Sex: Male
  Weight: 53.7 kg

DRUGS (17)
  1. AFINITOR [Suspect]
     Active Substance: EVEROLIMUS
     Dosage: 5 MG
     Route: 048
     Dates: end: 20180301
  2. GLUCOBAY [Concomitant]
     Active Substance: ACARBOSE
     Indication: DIABETES MELLITUS
     Dosage: 50 MG, TID
     Route: 048
     Dates: start: 20140908, end: 20191129
  3. SUNITINIB MALATE. [Concomitant]
     Active Substance: SUNITINIB MALATE
     Indication: PANCREATIC NEUROENDOCRINE TUMOUR
     Dosage: UNK
     Route: 065
     Dates: start: 201803, end: 201806
  4. AZUNOL ST [Concomitant]
     Indication: PRODUCT USED FOR UNKNOWN INDICATION
     Dosage: UNK
     Route: 048
  5. AFINITOR [Suspect]
     Active Substance: EVEROLIMUS
     Dosage: 5 MG
     Route: 048
     Dates: start: 20190309, end: 20190621
  6. SUNITINIB MALATE. [Concomitant]
     Active Substance: SUNITINIB MALATE
     Dosage: UNK
     Route: 065
     Dates: start: 201906, end: 201910
  7. STREPTOZOCIN [Concomitant]
     Active Substance: STREPTOZOCIN
     Dosage: UNK
     Route: 065
  8. LANREOTIDE ACETATE [Concomitant]
     Active Substance: LANREOTIDE ACETATE
     Indication: PANCREATIC NEUROENDOCRINE TUMOUR
     Dosage: UNK
     Route: 065
     Dates: end: 201910
  9. AFINITOR [Suspect]
     Active Substance: EVEROLIMUS
     Indication: PANCREATIC NEUROENDOCRINE TUMOUR
     Dosage: 10 MG
     Route: 048
     Dates: start: 201409, end: 201410
  10. AFINITOR [Suspect]
     Active Substance: EVEROLIMUS
     Dosage: 5 MG
     Route: 048
  11. OCTREOTIDE ACETATE. [Suspect]
     Active Substance: OCTREOTIDE ACETATE
     Indication: PANCREATIC NEUROENDOCRINE TUMOUR
     Dosage: UNK
     Route: 065
     Dates: start: 201608
  12. GLIMEPIRIDE. [Concomitant]
     Active Substance: GLIMEPIRIDE
     Indication: DIABETES MELLITUS
     Dosage: 2 MG, QD
     Route: 048
     Dates: start: 20140908, end: 20190813
  13. AFINITOR [Suspect]
     Active Substance: EVEROLIMUS
     Dosage: 10 MG
     Route: 048
     Dates: start: 20141015
  14. AFINITOR [Suspect]
     Active Substance: EVEROLIMUS
     Dosage: 7.5 MG
     Route: 048
     Dates: start: 201411
  15. STREPTOZOCIN [Concomitant]
     Active Substance: STREPTOZOCIN
     Indication: PANCREATIC NEUROENDOCRINE TUMOUR
     Dosage: UNK, QW
     Route: 065
     Dates: start: 201807, end: 201903
  16. METGLUCO [Concomitant]
     Active Substance: METFORMIN HYDROCHLORIDE
     Indication: DIABETES MELLITUS
     Dosage: 250 MG, BID
     Route: 048
     Dates: start: 20140908, end: 20181129
  17. SUTENT [Concomitant]
     Active Substance: SUNITINIB MALATE
     Indication: PRODUCT USED FOR UNKNOWN INDICATION
     Dosage: UNK
     Route: 065

REACTIONS (9)
  - Malignant neoplasm progression [Fatal]
  - Interstitial lung disease [Recovered/Resolved]
  - Therapy non-responder [Not Recovered/Not Resolved]
  - Platelet count decreased [Unknown]
  - Interstitial lung disease [Not Recovered/Not Resolved]
  - Metastasis [Fatal]
  - Asthenia [Fatal]
  - Cough [Unknown]
  - Pancreatic neuroendocrine tumour [Fatal]

NARRATIVE: CASE EVENT DATE: 201410
